FAERS Safety Report 7061993-X (Version None)
Quarter: 2010Q4

REPORT INFORMATION
  Report Type: 
  Country: None (occurrence: None)
  Receive Date: 20101026
  Receipt Date: 20101018
  Transmission Date: 20110411
  Serious: Yes (Hospitalization)
  Sender: FDA-Public Use
  Company Number: JP-BRISTOL-MYERS SQUIBB COMPANY-14597371

PATIENT
  Age: 56 Year
  Sex: Male
  Weight: 92 kg

DRUGS (4)
  1. ABILIFY [Suspect]
     Indication: SCHIZOPHRENIA
     Dosage: 18JUL08:12JUL09(360D) DOSE INCREASED TO 30MG/D,13JUL09 DOSE REDUCED TO 24MG/D.27SEP06:17JUL08(660D)
     Route: 048
     Dates: start: 20060927
  2. DEPAKENE [Suspect]
     Indication: ANGER
     Dosage: TABS
     Route: 048
     Dates: start: 20060527
  3. AMOBAN [Suspect]
     Indication: INSOMNIA
     Dosage: TAB
     Route: 048
     Dates: start: 20060921
  4. EVAMYL [Suspect]
     Indication: INSOMNIA
     Dosage: TABLET
     Route: 048
     Dates: start: 20060921

REACTIONS (4)
  - ABNORMAL SENSATION IN EYE [None]
  - GASTROINTESTINAL HAEMORRHAGE [None]
  - HIATUS HERNIA [None]
  - REFLUX OESOPHAGITIS [None]
